FAERS Safety Report 12819529 (Version 1)
Quarter: 2016Q4

REPORT INFORMATION
  Report Type: Report from Study
  Country: US (occurrence: US)
  Receive Date: 20161006
  Receipt Date: 20161006
  Transmission Date: 20170207
  Serious: No
  Sender: FDA-Public Use
  Company Number: US-AMGEN-USASL2016002216

PATIENT
  Age: 58 Year
  Sex: Female

DRUGS (1)
  1. PROLIA [Suspect]
     Active Substance: DENOSUMAB
     Indication: OSTEOPOROSIS POSTMENOPAUSAL
     Dosage: UNK UNK, Q6MO
     Route: 065
     Dates: start: 201206

REACTIONS (4)
  - Endodontic procedure [Unknown]
  - Pain in extremity [Recovered/Resolved]
  - Inappropriate schedule of drug administration [Unknown]
  - Bone metabolism disorder [Not Recovered/Not Resolved]

NARRATIVE: CASE EVENT DATE: 201404
